FAERS Safety Report 19118709 (Version 3)
Quarter: 2021Q2

REPORT INFORMATION
  Report Type: Spontaneous
  Country: CZ (occurrence: CZ)
  Receive Date: 20210410
  Receipt Date: 20210507
  Transmission Date: 20210717
  Serious: Yes (Death, Other)
  Sender: FDA-Public Use
  Company Number: CZ-B.I. PHARMACEUTICALS,INC./RIDGEFIELD-2021-BI-096365

PATIENT
  Age: 62 Year
  Sex: Male
  Weight: 111 kg

DRUGS (6)
  1. NORADRENALIN [NOREPINEPHRINE] [Concomitant]
     Active Substance: NOREPINEPHRINE
     Indication: PRODUCT USED FOR UNKNOWN INDICATION
  2. PRAXBIND [Suspect]
     Active Substance: IDARUCIZUMAB
     Indication: PROCOAGULANT THERAPY
     Route: 042
     Dates: start: 20210328, end: 20210328
  3. CONTROLOC [PANTOPRAZOLE SODIUM SESQUIHYDRATE] [Concomitant]
     Indication: PRODUCT USED FOR UNKNOWN INDICATION
  4. ISOPRENALIN [ISOPRENALINE SULFATE] [Concomitant]
     Indication: PRODUCT USED FOR UNKNOWN INDICATION
  5. FUROSEMIDE [FUROSEMIDE;SODIUM CHLORIDE] [Concomitant]
     Active Substance: FUROSEMIDE SODIUM
     Indication: PRODUCT USED FOR UNKNOWN INDICATION
  6. PRAXBIND [Suspect]
     Active Substance: IDARUCIZUMAB
     Route: 042
     Dates: start: 20210329, end: 20210329

REACTIONS (3)
  - Coagulopathy [Fatal]
  - Internal haemorrhage [Fatal]
  - Shock [Fatal]

NARRATIVE: CASE EVENT DATE: 20210328
